FAERS Safety Report 7969860-1 (Version None)
Quarter: 2011Q4

REPORT INFORMATION
  Report Type: 
  Country: None (occurrence: None)
  Receive Date: 20111212
  Receipt Date: 20111204
  Transmission Date: 20120403
  Serious: Yes (Other)
  Sender: FDA-Public Use
  Company Number: TR-BAYER-2011-116253

PATIENT
  Age: 38 Year
  Sex: Female
  Weight: 65 kg

DRUGS (2)
  1. IBRUPROFEN [Concomitant]
  2. INTERFERON BETA-1B [Suspect]
     Indication: PRODUCT USED FOR UNKNOWN INDICATION
     Dosage: UNK
     Dates: start: 20110707

REACTIONS (5)
  - PAIN [None]
  - ALOPECIA [None]
  - PAIN IN EXTREMITY [None]
  - CHEST PAIN [None]
  - NECK PAIN [None]
